FAERS Safety Report 9417345 (Version 1)
Quarter: 2013Q3

REPORT INFORMATION
  Report Type: Spontaneous
  Country: US (occurrence: US)
  Receive Date: 20130724
  Receipt Date: 20130724
  Transmission Date: 20140515
  Serious: No
  Sender: FDA-Public Use
  Company Number: US-BRISTOL-MYERS SQUIBB COMPANY-18871764

PATIENT
  Age: 85 Year
  Sex: Female
  Weight: 77.1 kg

DRUGS (1)
  1. ELIQUIS [Suspect]
     Indication: ATRIAL FIBRILLATION
     Dosage: LAST DOSE:04MAY2013?SHE TOOK TOOK 6 DOSES IN TOTAL.
     Dates: start: 20130501

REACTIONS (2)
  - Epistaxis [Not Recovered/Not Resolved]
  - Rash pruritic [Unknown]
